FAERS Safety Report 17246217 (Version 1)
Quarter: 2020Q1

REPORT INFORMATION
  Report Type: Spontaneous
  Country: US (occurrence: US)
  Receive Date: 20200107
  Receipt Date: 20200107
  Transmission Date: 20200409
  Serious: Yes (Death, Life-Threatening, Hospitalization)
  Sender: FDA-Public Use
  Company Number: None

PATIENT
  Age: 19 Year
  Sex: Female
  Weight: 124.74 kg

DRUGS (1)
  1. NEXPLANON [Suspect]
     Active Substance: ETONOGESTREL

REACTIONS (6)
  - Oxygen saturation decreased [None]
  - Pulse absent [None]
  - Weight increased [None]
  - Pneumonia [None]
  - Pulmonary embolism [None]
  - Menstrual disorder [None]

NARRATIVE: CASE EVENT DATE: 20191206
